FAERS Safety Report 20977573 (Version 1)
Quarter: 2022Q2

REPORT INFORMATION
  Report Type: Spontaneous
  Country: CN (occurrence: CN)
  Receive Date: 20220618
  Receipt Date: 20220618
  Transmission Date: 20220721
  Serious: Yes (Hospitalization)
  Sender: FDA-Public Use
  Company Number: CN-BAYER-2022A083833

PATIENT
  Age: 92 Year
  Sex: Female
  Weight: 74 kg

DRUGS (1)
  1. XARELTO [Suspect]
     Active Substance: RIVAROXABAN
     Indication: Atrial fibrillation
     Dosage: 10 MG, QD
     Route: 048
     Dates: start: 20210127, end: 20220411

REACTIONS (8)
  - Basal ganglia haemorrhage [Recovering/Resolving]
  - Loss of consciousness [Recovering/Resolving]
  - Hemiparesis [Recovering/Resolving]
  - Salivary hypersecretion [Recovering/Resolving]
  - Unresponsive to stimuli [Recovering/Resolving]
  - Speech disorder [Recovering/Resolving]
  - Prescribed underdose [Unknown]
  - Underdose [Unknown]

NARRATIVE: CASE EVENT DATE: 20210127
